FAERS Safety Report 7558508-6 (Version None)
Quarter: 2011Q2

REPORT INFORMATION
  Report Type: 
  Country: None (occurrence: None)
  Receive Date: 20110620
  Receipt Date: 20110608
  Transmission Date: 20111010
  Serious: Yes (Other)
  Sender: FDA-Public Use
  Company Number: JP-GILEAD-E2B_00001338

PATIENT
  Age: 71 Year
  Sex: Female

DRUGS (2)
  1. HEPSERA [Suspect]
     Indication: HEPATITIS B
     Route: 048
     Dates: start: 20101214, end: 20110121
  2. LAMIVUDINE(PEPFAR) [Concomitant]
     Indication: HEPATITIS B
     Dosage: 100MG PER DAY
     Route: 048

REACTIONS (1)
  - LIVER DISORDER [None]
